FAERS Safety Report 5726348-6 (Version None)
Quarter: 2008Q2

REPORT INFORMATION
  Report Type: 
  Country: None (occurrence: None)
  Receive Date: 20080430
  Receipt Date: 20080424
  Transmission Date: 20081010
  Serious: Yes (Other)
  Sender: FDA-Public Use
  Company Number: 2008SP002431

PATIENT
  Age: 49 Year
  Sex: Male

DRUGS (4)
  1. PEG-INTRON [Suspect]
     Indication: HEPATITIS C
     Dosage: ; SC, 150 MCG; ; SC
     Route: 058
     Dates: start: 20041101, end: 20050401
  2. PEG-INTRON [Suspect]
     Indication: HEPATITIS C
     Dosage: ; SC, 150 MCG; ; SC
     Route: 058
     Dates: start: 20070701
  3. REBETOL [Suspect]
     Indication: HEPATITIS C
     Dosage: ; PO,; PO
     Route: 048
     Dates: start: 20041101, end: 20050401
  4. REBETOL [Suspect]
     Indication: HEPATITIS C
     Dosage: ; PO,; PO
     Route: 048
     Dates: start: 20070701

REACTIONS (10)
  - ABDOMINAL WALL DISORDER [None]
  - ALOPECIA [None]
  - ASCITES [None]
  - CHILLS [None]
  - CONDITION AGGRAVATED [None]
  - CYST [None]
  - HEPATITIS C [None]
  - NAUSEA [None]
  - PHARMACEUTICAL PRODUCT COMPLAINT [None]
  - PSORIASIS [None]
